FAERS Safety Report 24203322 (Version 2)
Quarter: 2024Q3

REPORT INFORMATION
  Report Type: Spontaneous
  Country: US (occurrence: None)
  Receive Date: 20240813
  Receipt Date: 20240903
  Transmission Date: 20241017
  Serious: No
  Sender: ASTRAZENECA
  Company Number: 2024A148878

PATIENT
  Age: 1826 Day
  Sex: Female

DRUGS (5)
  1. BUDESONIDE\FORMOTEROL [Suspect]
     Active Substance: BUDESONIDE\FORMOTEROL
     Indication: Asthma
     Dosage: 160 UG, TWO TIMES A DAY
     Route: 055
     Dates: start: 20240516
  2. BUDESONIDE\FORMOTEROL [Suspect]
     Active Substance: BUDESONIDE\FORMOTEROL
     Indication: Vasomotor rhinitis
     Dosage: 160 UG, TWO TIMES A DAY
     Route: 055
     Dates: start: 20240516
  3. BUDESONIDE\FORMOTEROL [Suspect]
     Active Substance: BUDESONIDE\FORMOTEROL
     Indication: Seasonal allergy
     Dosage: 160 UG, TWO TIMES A DAY
     Route: 055
     Dates: start: 20240516
  4. MONTELUKAST [Concomitant]
     Active Substance: MONTELUKAST SODIUM
     Indication: Asthma
     Dosage: 4.0MG UNKNOWN
  5. FLUTICASONE [Concomitant]
     Active Substance: FLUTICASONE
     Indication: Asthma
     Dosage: 50 MCG/SPRAY UNKNOWN
     Dates: start: 20240516

REACTIONS (4)
  - Feeling jittery [Recovered/Resolved]
  - Tremor [Recovered/Resolved]
  - Overdose [Unknown]
  - Device malfunction [Unknown]

NARRATIVE: CASE EVENT DATE: 20240614
